FAERS Safety Report 6178472-4 (Version None)
Quarter: 2009Q2

REPORT INFORMATION
  Report Type: 
  Country: None (occurrence: None)
  Receive Date: 20090430
  Receipt Date: 20090417
  Transmission Date: 20091009
  Serious: Yes (Other)
  Sender: FDA-Public Use
  Company Number: ENTC2009-0134

PATIENT
  Age: 57 Year
  Sex: Male

DRUGS (1)
  1. STALEVO 100 [Suspect]
     Indication: PARKINSON'S DISEASE
     Dosage: 4 TABLETS DAILY ORAL
     Route: 048
     Dates: start: 20080801

REACTIONS (1)
  - MUSCULOSKELETAL STIFFNESS [None]
